FAERS Safety Report 17330326 (Version 1)
Quarter: 2020Q1

REPORT INFORMATION
  Report Type: Spontaneous
  Country: US (occurrence: US)
  Receive Date: 20200128
  Receipt Date: 20200128
  Transmission Date: 20200409
  Serious: No
  Sender: FDA-Public Use
  Company Number: US-ASTRAZENECA-2020SE12731

PATIENT
  Age: 79 Year
  Sex: Female

DRUGS (15)
  1. ARIMIDEX [Suspect]
     Active Substance: ANASTROZOLE
     Route: 048
  2. LEVOTHROID [Suspect]
     Active Substance: LEVOTHYROXINE SODIUM
     Dosage: UNK
  3. ESOMEPRAZOLE MAGNESIUM. [Suspect]
     Active Substance: ESOMEPRAZOLE MAGNESIUM
     Route: 048
  4. DIAZEPAM. [Suspect]
     Active Substance: DIAZEPAM
     Dosage: UNK
  5. LETROZOLE. [Suspect]
     Active Substance: LETROZOLE
     Dosage: UNK
  6. ALBUTEROL. [Suspect]
     Active Substance: ALBUTEROL
     Dosage: UNK
  7. GLUTEN [Suspect]
     Active Substance: WHEAT GLUTEN
     Dosage: UNK
  8. LACTOSE [Suspect]
     Active Substance: LACTOSE
     Dosage: UNK
  9. CYCLOBENZAPRINE. [Suspect]
     Active Substance: CYCLOBENZAPRINE
     Dosage: UNK
  10. GLYCERINE [Suspect]
     Active Substance: GLYCERIN
     Dosage: UNK
  11. SYNTHROID [Suspect]
     Active Substance: LEVOTHYROXINE SODIUM
     Dosage: UNK
  12. HYDROCODONE [Suspect]
     Active Substance: HYDROCODONE
     Dosage: UNK
  13. MENTHOL. [Suspect]
     Active Substance: MENTHOL
     Dosage: UNK
  14. FAMOTIDINE. [Suspect]
     Active Substance: FAMOTIDINE
     Dosage: UNK
  15. TAMOXIFEN [Suspect]
     Active Substance: TAMOXIFEN
     Route: 048

REACTIONS (1)
  - Drug hypersensitivity [Unknown]
